FAERS Safety Report 26172255 (Version 1)
Quarter: 2025Q4

REPORT INFORMATION
  Report Type: Report from Study
  Country: US (occurrence: US)
  Receive Date: 20251218
  Receipt Date: 20251218
  Transmission Date: 20260119
  Serious: No
  Sender: SANDOZ
  Company Number: US-SANDOZ-SDZ2024US044859

PATIENT
  Sex: Male

DRUGS (2)
  1. OMNITROPE [Suspect]
     Active Substance: SOMATROPIN
     Indication: Hypopituitarism
     Dosage: 1.35 MG 2 DOSE EVERY N/A N/A
     Route: 058
     Dates: start: 20240419
  2. OMNITROPE [Suspect]
     Active Substance: SOMATROPIN
     Indication: Hypopituitarism
     Dosage: 1.35 MG 2 DOSE EVERY N/A N/A
     Route: 058
     Dates: start: 20240419

REACTIONS (2)
  - Wrong technique in product usage process [Unknown]
  - Device issue [Unknown]
